FAERS Safety Report 8041590-X (Version None)
Quarter: 2012Q1

REPORT INFORMATION
  Report Type: 
  Country: None (occurrence: None)
  Receive Date: 20120112
  Receipt Date: 20120111
  Transmission Date: 20120608
  Serious: Yes (Other)
  Sender: FDA-Public Use
  Company Number: US-JNJFOC-2007325593

PATIENT
  Sex: Female
  Weight: 72.58 kg

DRUGS (2)
  1. SUDAFED 24 HOUR [Suspect]
     Route: 048
  2. SUDAFED 24 HOUR [Suspect]
     Indication: RESPIRATORY TRACT INFECTION
     Dosage: DAILY DOSE TEXT: TWO TABLETS TWICE
     Route: 048
     Dates: start: 20070629, end: 20070629

REACTIONS (5)
  - INCORRECT DRUG ADMINISTRATION DURATION [None]
  - DIZZINESS [None]
  - HEADACHE [None]
  - SPEECH DISORDER [None]
  - OVERDOSE [None]
